FAERS Safety Report 6843503-2 (Version None)
Quarter: 2010Q3

REPORT INFORMATION
  Report Type: 
  Country: None (occurrence: None)
  Receive Date: 20100712
  Receipt Date: 20100701
  Transmission Date: 20110219
  Serious: Yes (Death)
  Sender: FDA-Public Use
  Company Number: 2010EU003208

PATIENT
  Age: 62 Year

DRUGS (1)
  1. TACROLIMUS [Suspect]
     Indication: LIVER TRANSPLANT

REACTIONS (2)
  - ALTERNARIA INFECTION [None]
  - HEPATORENAL SYNDROME [None]
